FAERS Safety Report 12175374 (Version 1)
Quarter: 2016Q1

REPORT INFORMATION
  Report Type: Spontaneous
  Country: US (occurrence: US)
  Receive Date: 20160314
  Receipt Date: 20160314
  Transmission Date: 20160526
  Serious: Yes (Other)
  Sender: FDA-Public Use
  Company Number: US-JNJFOC-20160310994

PATIENT
  Sex: Female

DRUGS (1)
  1. REMICADE [Suspect]
     Active Substance: INFLIXIMAB
     Indication: PRODUCT USED FOR UNKNOWN INDICATION
     Dosage: REPORTED AS APPROXIMATELY 1 YEAR FROM THE TIME OF THIS REPORT
     Route: 042
     Dates: start: 2015

REACTIONS (1)
  - Pemphigoid [Unknown]
